FAERS Safety Report 16249754 (Version 1)
Quarter: 2019Q2

REPORT INFORMATION
  Report Type: Report from Study
  Country: IN (occurrence: IN)
  Receive Date: 20190429
  Receipt Date: 20190429
  Transmission Date: 20190711
  Serious: Yes (Other)
  Sender: FDA-Public Use
  Company Number: IN-GLAXOSMITHKLINE-IN2019GSK074590

PATIENT
  Sex: Female

DRUGS (2)
  1. TERBINAFINE. [Suspect]
     Active Substance: TERBINAFINE
     Indication: TINEA INFECTION
     Dosage: UNK (VARIABLY PRESCRIBED 250 AND 500 MG/DAY)
     Route: 048
  2. TERBINAFINE. [Suspect]
     Active Substance: TERBINAFINE
     Indication: DERMATOPHYTOSIS OF NAIL

REACTIONS (7)
  - Subacute cutaneous lupus erythematosus [Recovered/Resolved]
  - Exfoliative rash [Recovered/Resolved]
  - Perivascular dermatitis [Recovered/Resolved]
  - Lupus-like syndrome [Recovered/Resolved]
  - Rash maculo-papular [Recovered/Resolved]
  - Idiosyncratic drug reaction [Recovered/Resolved]
  - Rash erythematous [Recovered/Resolved]
